FAERS Safety Report 8169588-1 (Version None)
Quarter: 2012Q1

REPORT INFORMATION
  Report Type: 
  Country: None (occurrence: None)
  Receive Date: 20120222
  Receipt Date: 20120208
  Transmission Date: 20120608
  Serious: Yes (Other)
  Sender: FDA-Public Use
  Company Number: THQ2007A00164

PATIENT
  Age: 68 Year
  Sex: Male

DRUGS (10)
  1. DIGOXIN [Suspect]
     Dosage: 0.125 MG (0.125 MG, 1 IN 1 D)
  2. EZETIMIBE [Suspect]
     Dosage: 10 MG (10 MG, 1 IN 1 D)
  3. BISOPROLOL FUMARATE [Suspect]
     Dosage: 7.5MG (7.5 MG, 1 IN 1 D)
  4. LANSOPRAZOLE [Suspect]
     Dosage: 30 MG (30 MG, 1 IN 1 D)
  5. ACIPIMOX [Suspect]
     Dosage: 500 MG(250 MG, 2 IN 1 D) PER ORAL
     Route: 048
  6. WARFARIN SODIUM [Concomitant]
  7. ASPIRIN [Suspect]
     Dosage: 75 MG (75 MG, 1 IN 1 D)
  8. FUROSEMIDE [Suspect]
     Dosage: 160 MG (80 MG,2 IN 1 D), , 120 MG (120 MG, 1 IN 1 D), , 160 MG (160 MG, 1 IN 1 D)
  9. AMIODARONE HCL [Suspect]
     Indication: PRODUCT USED FOR UNKNOWN INDICATION
     Dosage: 200 MG (200 MG, 1 IN 1 D)
  10. PERINDOPRIL ERBUMINE [Suspect]
     Dosage: 2 MG (2 MG, 1 IN 1 D)

REACTIONS (16)
  - DYSPNOEA [None]
  - CONDITION AGGRAVATED [None]
  - LEFT VENTRICULAR DYSFUNCTION [None]
  - FEELING ABNORMAL [None]
  - VENTRICULAR TACHYCARDIA [None]
  - DISSOCIATION [None]
  - DIZZINESS [None]
  - OEDEMA PERIPHERAL [None]
  - OEDEMA [None]
  - DRUG INEFFECTIVE [None]
  - FATIGUE [None]
  - CARDIAC MURMUR [None]
  - VENOUS PRESSURE JUGULAR INCREASED [None]
  - DYSPNOEA EXERTIONAL [None]
  - ATRIAL FIBRILLATION [None]
  - PARAESTHESIA [None]
